FAERS Safety Report 24685935 (Version 2)
Quarter: 2024Q4

REPORT INFORMATION
  Report Type: Spontaneous
  Country: FR (occurrence: FR)
  Receive Date: 20241202
  Receipt Date: 20241226
  Transmission Date: 20250115
  Serious: Yes (Death)
  Sender: PFIZER
  Company Number: FR-PFIZER INC-PV202400117040

PATIENT
  Age: 82 Year
  Sex: Female

DRUGS (4)
  1. ELRANATAMAB [Suspect]
     Active Substance: ELRANATAMAB
     Indication: Plasma cell myeloma
     Dosage: UNK
     Dates: start: 20240322
  2. ELRANATAMAB [Suspect]
     Active Substance: ELRANATAMAB
     Dosage: UNK
     Dates: start: 20240328
  3. ELRANATAMAB [Suspect]
     Active Substance: ELRANATAMAB
     Dosage: 76 MG FROM WEEK 2 TO WEEK 24
  4. ELRANATAMAB [Suspect]
     Active Substance: ELRANATAMAB
     Dosage: UNK
     Dates: end: 20240510

REACTIONS (1)
  - Death [Fatal]

NARRATIVE: CASE EVENT DATE: 20240603
